FAERS Safety Report 25691096 (Version 1)
Quarter: 2025Q3

REPORT INFORMATION
  Report Type: Spontaneous
  Country: EU (occurrence: EU)
  Receive Date: 20250818
  Receipt Date: 20250818
  Transmission Date: 20251021
  Serious: Yes (Life-Threatening, Disabling, Other)
  Sender: PFIZER
  Company Number: EU-PFIZER INC-202500164394

PATIENT
  Age: 8 Year
  Sex: Male

DRUGS (3)
  1. VECURONIUM BROMIDE [Suspect]
     Active Substance: VECURONIUM BROMIDE
     Indication: Seizure
  2. VECURONIUM BROMIDE [Suspect]
     Active Substance: VECURONIUM BROMIDE
     Indication: Coma
  3. VECURONIUM BROMIDE [Suspect]
     Active Substance: VECURONIUM BROMIDE
     Indication: Hepatomegaly

REACTIONS (5)
  - Hyperthermia [Unknown]
  - Renal failure [Unknown]
  - Hepatic cytolysis [Unknown]
  - Amyotrophy [Unknown]
  - Neuromyopathy [Unknown]
